FAERS Safety Report 7625975-9 (Version None)
Quarter: 2011Q3

REPORT INFORMATION
  Report Type: 
  Country: None (occurrence: None)
  Receive Date: 20110721
  Receipt Date: 20110715
  Transmission Date: 20111222
  Serious: Yes (Other)
  Sender: FDA-Public Use
  Company Number: FR-GILEAD-2011-0037672

PATIENT
  Sex: Female

DRUGS (5)
  1. TAMOXIFEN CITRATE [Concomitant]
     Dates: start: 20060301
  2. ATRIPLA [Suspect]
     Indication: HIV INFECTION
     Route: 048
     Dates: start: 20101011, end: 20110318
  3. FERROUS SULFATE TAB [Concomitant]
     Indication: IRON DEFICIENCY
     Route: 048
     Dates: start: 20110318, end: 20110426
  4. KALETRA [Concomitant]
     Indication: HIV INFECTION
     Route: 048
     Dates: start: 20110318
  5. COMBIVIR [Concomitant]
     Indication: HIV INFECTION
     Route: 048
     Dates: start: 20110318

REACTIONS (1)
  - ABORTION SPONTANEOUS [None]
